FAERS Safety Report 8512467 (Version 4)
Quarter: 2013Q1

REPORT INFORMATION
  Report Type: Spontaneous
  Country: US (occurrence: US)
  Receive Date: 20120413
  Receipt Date: 20130104
  Transmission Date: 20140127
  Serious: No
  Sender: FDA-Public Use
  Company Number: US-ASTRAZENECA-2011SE47688

PATIENT
  Age: 57 Year
  Sex: Female
  Weight: 104.3 kg

DRUGS (12)
  1. NEXIUM [Suspect]
     Indication: GASTROOESOPHAGEAL REFLUX DISEASE
     Route: 048
     Dates: start: 2003, end: 201208
  2. NEXIUM [Suspect]
     Indication: GASTROOESOPHAGEAL REFLUX DISEASE
     Route: 048
     Dates: start: 201208
  3. WELLBUTRIN SR [Concomitant]
     Indication: DEPRESSION
  4. DICLOFENAC [Concomitant]
     Indication: ARTHRITIS
  5. DICLOFENAC [Concomitant]
     Indication: TENDON RUPTURE
  6. VASOTEC [Concomitant]
     Indication: DIABETES MELLITUS
  7. LEXAPRO [Concomitant]
     Indication: DEPRESSION
  8. AMARYL [Concomitant]
     Indication: DIABETES MELLITUS
  9. HCTZ [Concomitant]
     Indication: HYPERTENSION
  10. GLUCOPHAGE [Concomitant]
     Indication: DIABETES MELLITUS
  11. PRAVACHOL [Concomitant]
     Indication: BLOOD CHOLESTEROL ABNORMAL
  12. AMBIEN [Concomitant]
     Indication: INSOMNIA

REACTIONS (9)
  - Aphagia [Recovered/Resolved]
  - Blood glucose abnormal [Unknown]
  - Diabetes mellitus [Unknown]
  - Herpes zoster [Unknown]
  - Gastrooesophageal reflux disease [Recovered/Resolved]
  - Blood pressure decreased [Recovered/Resolved]
  - Malaise [Unknown]
  - Drug dose omission [Unknown]
  - Drug ineffective [Unknown]
